FAERS Safety Report 8365803-X (Version None)
Quarter: 2012Q2

REPORT INFORMATION
  Report Type: 
  Country: None (occurrence: None)
  Receive Date: 20120517
  Receipt Date: 20120511
  Transmission Date: 20120825
  Serious: Yes (Death, Hospitalization, Other)
  Sender: FDA-Public Use
  Company Number: US-AMGEN-USASP2011054364

PATIENT
  Sex: Female

DRUGS (6)
  1. RITUXAN [Concomitant]
     Indication: CHRONIC LYMPHOCYTIC LEUKAEMIA
     Dosage: UNK UNK, Q4WK
     Route: 042
     Dates: start: 20091102
  2. CYTOXAN [Concomitant]
     Indication: CHRONIC LYMPHOCYTIC LEUKAEMIA
     Dosage: 1000 MG, UNK
  3. PENTOSTATIN [Concomitant]
     Indication: CHRONIC LYMPHOCYTIC LEUKAEMIA
  4. CORTICOSTEROIDS [Concomitant]
     Indication: IDIOPATHIC THROMBOCYTOPENIC PURPURA
  5. NPLATE [Suspect]
     Indication: IDIOPATHIC THROMBOCYTOPENIC PURPURA
     Dosage: 60 MUG, UNK
     Route: 058
     Dates: start: 20110217, end: 20110217
  6. TREANDA [Concomitant]
     Indication: CHRONIC LYMPHOCYTIC LEUKAEMIA
     Dosage: UNK
     Route: 042
     Dates: start: 20100215

REACTIONS (6)
  - GASTROINTESTINAL HAEMORRHAGE [None]
  - MALNUTRITION [None]
  - CHRONIC LYMPHOCYTIC LEUKAEMIA [None]
  - HYPOALBUMINAEMIA [None]
  - IDIOPATHIC THROMBOCYTOPENIC PURPURA [None]
  - HAEMORRHAGIC ANAEMIA [None]
